FAERS Safety Report 6648480-5 (Version None)
Quarter: 2010Q1

REPORT INFORMATION
  Report Type: 
  Country: None (occurrence: None)
  Receive Date: 20100324
  Receipt Date: 20100318
  Transmission Date: 20100710
  Serious: Yes (Other)
  Sender: FDA-Public Use
  Company Number: US-BRACCO-003823

PATIENT
  Sex: Female

DRUGS (1)
  1. ISOVUE-370 [Suspect]
     Route: 061
     Dates: start: 20091130, end: 20091130

REACTIONS (5)
  - ACCIDENTAL EXPOSURE [None]
  - ERYTHEMA OF EYELID [None]
  - EYE INFLAMMATION [None]
  - EYELID OEDEMA [None]
  - RETINAL DISORDER [None]
